FAERS Safety Report 23102959 (Version 1)
Quarter: 2023Q4

REPORT INFORMATION
  Report Type: Spontaneous
  Country: US (occurrence: None)
  Receive Date: 20231022
  Receipt Date: 20231022
  Transmission Date: 20240110
  Serious: Yes (Life-Threatening, Hospitalization)
  Sender: FDA-Public Use
  Company Number: None

PATIENT
  Age: 28 Year
  Sex: Male
  Weight: 92 kg

DRUGS (1)
  1. ATORVASTATIN CALCIUM [Suspect]
     Active Substance: ATORVASTATIN CALCIUM
     Dosage: OTHER QUANTITY : 1/2 TAB;?FREQUENCY : DAILY;?
     Route: 048
     Dates: start: 20230331, end: 20230425

REACTIONS (8)
  - Amnesia [None]
  - Anxiety [None]
  - Confusional state [None]
  - Amnesia [None]
  - Muscle spasms [None]
  - Therapy cessation [None]
  - Road traffic accident [None]
  - Blood alcohol increased [None]

NARRATIVE: CASE EVENT DATE: 20230414
